FAERS Safety Report 13260902 (Version 3)
Quarter: 2017Q2

REPORT INFORMATION
  Report Type: Spontaneous
  Country: US (occurrence: US)
  Receive Date: 20170222
  Receipt Date: 20170407
  Transmission Date: 20170830
  Serious: No
  Sender: FDA-Public Use
  Company Number: US-TEVA-731154ACC

PATIENT
  Sex: Male

DRUGS (9)
  1. COPAXONE [Suspect]
     Active Substance: GLATIRAMER ACETATE
     Indication: MULTIPLE SCLEROSIS
     Dosage: NOT TAKING DAILY
     Route: 058
     Dates: start: 200912
  2. MECLIZINE [Concomitant]
     Active Substance: MECLIZINE HYDROCHLORIDE
  3. COPAXONE [Concomitant]
     Active Substance: GLATIRAMER ACETATE
  4. VITAMIN C [Concomitant]
     Active Substance: ASCORBIC ACID
  5. COPAXONE [Suspect]
     Active Substance: GLATIRAMER ACETATE
     Dosage: ADMINISTERS ONLY ON MONDAYS, WEDNESDAYS AND FRIDAYS
     Route: 058
     Dates: start: 20130814
  6. XALATAN [Concomitant]
     Active Substance: LATANOPROST
  7. LUTEIN [Concomitant]
     Active Substance: LUTEIN
  8. ACYCLOVIR. [Concomitant]
     Active Substance: ACYCLOVIR
  9. LITHIUM. [Concomitant]
     Active Substance: LITHIUM

REACTIONS (2)
  - Hypoaesthesia [Unknown]
  - Product use issue [Unknown]

NARRATIVE: CASE EVENT DATE: 2015
